FAERS Safety Report 4726242-3 (Version None)
Quarter: 2005Q3

REPORT INFORMATION
  Report Type: 
  Country: None (occurrence: None)
  Receive Date: 20050725
  Receipt Date: 20050712
  Transmission Date: 20060218
  Serious: Yes (Hospitalization, Other)
  Sender: FDA-Public Use
  Company Number: HQWYE215514JUL05

PATIENT
  Age: 68 Year
  Sex: Male

DRUGS (1)
  1. ROFERON, CONTROL FOR TEMSIROLIMUS           (INTERFERON ALFA, CONTROL [Suspect]
     Indication: RENAL CELL CARCINOMA STAGE UNSPECIFIED
     Dosage: 3 MU, 3 TIMES A WEEK SC
     Route: 058
     Dates: start: 20050304, end: 20050618

REACTIONS (4)
  - ABDOMINAL PAIN [None]
  - CONDITION AGGRAVATED [None]
  - PAIN [None]
  - PARKINSON'S DISEASE [None]
